FAERS Safety Report 6822306-9 (Version None)
Quarter: 2010Q3

REPORT INFORMATION
  Report Type: 
  Country: None (occurrence: None)
  Receive Date: 20100707
  Receipt Date: 20100707
  Transmission Date: 20110219
  Serious: Yes (Life-Threatening, Other)
  Sender: FDA-Public Use
  Company Number: None

PATIENT
  Age: 25 Year
  Sex: Female
  Weight: 40.8237 kg

DRUGS (1)
  1. DEPO-PROVERA [Suspect]
     Indication: CONTRACEPTION
     Dosage: 1 SHOT 1X EVERY 3 MONTHS IM
     Route: 030

REACTIONS (12)
  - ARTHRALGIA [None]
  - BACK PAIN [None]
  - DEPRESSION [None]
  - HAEMORRHAGE [None]
  - HEADACHE [None]
  - IMPAIRED DRIVING ABILITY [None]
  - LOSS OF EMPLOYMENT [None]
  - MIGRAINE [None]
  - MOOD SWINGS [None]
  - SUICIDAL IDEATION [None]
  - TOOTH DISORDER [None]
  - VISUAL IMPAIRMENT [None]
